FAERS Safety Report 12962407 (Version 1)
Quarter: 2016Q4

REPORT INFORMATION
  Report Type: Report from Study
  Country: US (occurrence: US)
  Receive Date: 20161121
  Receipt Date: 20161121
  Transmission Date: 20170207
  Serious: Yes (Other)
  Sender: FDA-Public Use
  Company Number: US-TEVA-713587USA

PATIENT
  Sex: Female

DRUGS (1)
  1. COPAXONE [Suspect]
     Active Substance: GLATIRAMER ACETATE
     Dosage: UNKNOWN FORM STRENGTH
     Route: 058

REACTIONS (6)
  - Injection site pain [Unknown]
  - Injection site warmth [Unknown]
  - Respiratory distress [Unknown]
  - Pain [Unknown]
  - Injection site induration [Unknown]
  - Injection site pruritus [Unknown]
